FAERS Safety Report 6404084-0 (Version None)
Quarter: 2009Q4

REPORT INFORMATION
  Report Type: 
  Country: None (occurrence: None)
  Receive Date: 20091016
  Receipt Date: 20091012
  Transmission Date: 20100525
  Serious: Yes (Other)
  Sender: FDA-Public Use
  Company Number: AU-PFIZER INC-2009260890

PATIENT
  Age: 43 Year

DRUGS (2)
  1. CHAMPIX [Suspect]
     Dosage: 0.5 MG, UNK
     Route: 048
     Dates: start: 20090827
  2. ALCOHOL [Concomitant]
     Dosage: 6 BEERS PER DAY
     Route: 048

REACTIONS (11)
  - ABNORMAL DREAMS [None]
  - ANXIETY [None]
  - DISTURBANCE IN ATTENTION [None]
  - FEELING ABNORMAL [None]
  - HALLUCINATION, AUDITORY [None]
  - HANGOVER [None]
  - HYPERSENSITIVITY [None]
  - METAMORPHOPSIA [None]
  - NAUSEA [None]
  - OCULAR HYPERAEMIA [None]
  - VOMITING [None]
